FAERS Safety Report 9139012 (Version 1)
Quarter: 2013Q1

REPORT INFORMATION
  Report Type: Spontaneous
  Country: US (occurrence: US)
  Receive Date: 20130305
  Receipt Date: 20130305
  Transmission Date: 20140127
  Serious: Yes (Other)
  Sender: FDA-Public Use
  Company Number: US-ELI_LILLY_AND_COMPANY-US201302008259

PATIENT
  Sex: Female

DRUGS (2)
  1. ZYPREXA [Suspect]
     Indication: SCHIZOPHRENIA
     Dosage: UNK UNK, UNKNOWN
     Dates: start: 19970716, end: 20000921
  2. DEPAKOTE [Concomitant]

REACTIONS (2)
  - Weight increased [Recovered/Resolved with Sequelae]
  - Cutis laxa [Not Recovered/Not Resolved]
